FAERS Safety Report 18115032 (Version 2)
Quarter: 2020Q3

REPORT INFORMATION
  Report Type: Spontaneous
  Country: CN (occurrence: CN)
  Receive Date: 20200805
  Receipt Date: 20200904
  Transmission Date: 20201103
  Serious: Yes (Other)
  Sender: FDA-Public Use
  Company Number: NVSC2020CN214861

PATIENT

DRUGS (9)
  1. RITUXIMAB. [Suspect]
     Active Substance: RITUXIMAB
     Indication: BURKITT^S LYMPHOMA
     Dosage: 350 MG/M2, QD, DAY 0
     Route: 037
  2. METHOTREXATE. [Suspect]
     Active Substance: METHOTREXATE
     Indication: BURKITT^S LYMPHOMA
     Dosage: 1500 MG/M2, DAY 1
     Route: 065
  3. TENIPOSIDE. [Suspect]
     Active Substance: TENIPOSIDE
     Indication: BURKITT^S LYMPHOMA
     Dosage: 100 MG/M2, QD, DAY 4?5
     Route: 037
  4. DOXORUBICIN [Suspect]
     Active Substance: DOXORUBICIN
     Indication: BURKITT^S LYMPHOMA
     Dosage: 25 MG/M2, QD, DAY 4?5
     Route: 037
  5. IFOSFAMIDE. [Suspect]
     Active Substance: IFOSFAMIDE
     Indication: BURKITT^S LYMPHOMA
     Dosage: 800 MG/M2, QD, DAY 1?5
     Route: 037
  6. CYTOSINE ARABINOSIDE [Suspect]
     Active Substance: CYTARABINE
     Indication: BURKITT^S LYMPHOMA
     Dosage: 150 MG/M2, Q12H, DAYS 4?5
     Route: 037
  7. DEXAMETHASONE. [Suspect]
     Active Substance: DEXAMETHASONE
     Indication: BURKITT^S LYMPHOMA
     Dosage: 10 MG/M2, QD, DAY 1?5
     Route: 037
  8. CYCLOPHOSPHAMIDE. [Suspect]
     Active Substance: CYCLOPHOSPHAMIDE
     Indication: BURKITT^S LYMPHOMA
     Dosage: 200 MG/M2, QD, DAY 1?5
     Route: 037
  9. VINCRISTINE [Suspect]
     Active Substance: VINCRISTINE
     Indication: BURKITT^S LYMPHOMA
     Dosage: 2 MG, DAY 1
     Route: 037

REACTIONS (2)
  - Tumour lysis syndrome [Unknown]
  - Acute kidney injury [Recovered/Resolved]
